FAERS Safety Report 10877734 (Version 1)
Quarter: 2015Q1

REPORT INFORMATION
  Report Type: Spontaneous
  Country: US (occurrence: None)
  Receive Date: 20150224
  Receipt Date: 20150224
  Transmission Date: 20150721
  Serious: Yes (Other)
  Sender: FDA-Public Use
  Company Number: 2015-10704

PATIENT
  Age: 82 Year
  Sex: Female

DRUGS (9)
  1. BETAMOL (TIMOLOL) [Concomitant]
  2. MICARDIS [Concomitant]
     Active Substance: TELMISARTAN
  3. PROZAC [Concomitant]
     Active Substance: FLUOXETINE HYDROCHLORIDE
  4. VASOTEC (ENALAPRIL MALEATE) [Concomitant]
  5. CARDIZEM  (DILTIAZEM) [Concomitant]
  6. CORGARD [Concomitant]
     Active Substance: NADOLOL
  7. LIPITOR [Concomitant]
     Active Substance: ATORVASTATIN CALCIUM
  8. EYLEA [Suspect]
     Active Substance: AFLIBERCEPT
     Indication: AGE-RELATED MACULAR DEGENERATION
     Route: 031
     Dates: start: 20130226
  9. CARDURA [Concomitant]
     Active Substance: DOXAZOSIN MESYLATE

REACTIONS (6)
  - Visual acuity reduced [None]
  - Intraocular pressure increased [None]
  - Blindness unilateral [None]
  - Vitrectomy [None]
  - Endophthalmitis [None]
  - Eye pain [None]

NARRATIVE: CASE EVENT DATE: 20150211
